FAERS Safety Report 15917176 (Version 1)
Quarter: 2019Q1

REPORT INFORMATION
  Report Type: Spontaneous
  Country: US (occurrence: US)
  Receive Date: 20190115
  Receipt Date: 20190115
  Transmission Date: 20190417
  Serious: No
  Sender: FDA-Public Use
  Company Number: None

PATIENT
  Age: 96 Year
  Sex: Male
  Weight: 66.68 kg

DRUGS (5)
  1. ACTEMRA [Suspect]
     Active Substance: TOCILIZUMAB
     Indication: TEMPORAL ARTERITIS
     Route: 058
     Dates: start: 201802
  2. ACTEMRA [Suspect]
     Active Substance: TOCILIZUMAB
     Indication: OSTEOPOROSIS
  3. ACTEMRA [Suspect]
     Active Substance: TOCILIZUMAB
     Indication: PATHOLOGICAL FRACTURE
  4. ACTEMRA [Suspect]
     Active Substance: TOCILIZUMAB
     Indication: OSTEOPOROSIS
     Route: 058
     Dates: start: 201802
  5. ACTEMRA [Suspect]
     Active Substance: TOCILIZUMAB
     Indication: PATHOLOGICAL FRACTURE
     Route: 058
     Dates: start: 201802

REACTIONS (1)
  - Death [None]
